FAERS Safety Report 6251816-0 (Version None)
Quarter: 2009Q2

REPORT INFORMATION
  Report Type: 
  Country: None (occurrence: None)
  Receive Date: 20090629
  Receipt Date: 20090617
  Transmission Date: 20091009
  Serious: Yes (Other)
  Sender: FDA-Public Use
  Company Number: 2009AL004129

PATIENT
  Age: 61 Year
  Sex: Male

DRUGS (4)
  1. CITALOPRAM HYDROBROMIDE [Suspect]
     Indication: DEPRESSION
     Dosage: 10  MG; PO
     Route: 048
     Dates: start: 20090601, end: 20090606
  2. GLICLAZIDE [Concomitant]
  3. ATORVASTATIN CALCIUM [Concomitant]
  4. METFORMIN HCL [Concomitant]

REACTIONS (1)
  - ATRIOVENTRICULAR BLOCK COMPLETE [None]
